FAERS Safety Report 23255384 (Version 2)
Quarter: 2023Q4

REPORT INFORMATION
  Report Type: Spontaneous
  Country: RU (occurrence: RU)
  Receive Date: 20231203
  Receipt Date: 20231215
  Transmission Date: 20240110
  Serious: Yes (Hospitalization, Other)
  Sender: FDA-Public Use
  Company Number: RU-TORRENT-00000072

PATIENT
  Age: 36 Year
  Sex: Female

DRUGS (1)
  1. LAMOTRIGINE [Suspect]
     Active Substance: LAMOTRIGINE
     Indication: Epilepsy
     Dosage: UNKNOWN
     Route: 065

REACTIONS (2)
  - Epilepsy [Recovered/Resolved]
  - Ganglioglioma [Recovered/Resolved]

NARRATIVE: CASE EVENT DATE: 20160101
